FAERS Safety Report 8966641 (Version 1)
Quarter: 2012Q4

REPORT INFORMATION
  Report Type: 
  Country: US (occurrence: US)
  Receive Date: 20121217
  Receipt Date: 20121217
  Transmission Date: 20130627
  Serious: No
  Sender: FDA-Public Use
  Company Number: US-PFIZER INC-2012318519

PATIENT
  Age: 52 Year
  Sex: Female
  Weight: 62.13 kg

DRUGS (1)
  1. CHANTIX [Suspect]
     Indication: SMOKING CESSATION THERAPY
     Dosage: 0.5 mg,daily
     Route: 048
     Dates: start: 20121211

REACTIONS (1)
  - Headache [Recovered/Resolved]
